FAERS Safety Report 16974797 (Version 5)
Quarter: 2020Q3

REPORT INFORMATION
  Report Type: Spontaneous
  Country: US (occurrence: US)
  Receive Date: 20191030
  Receipt Date: 20200909
  Transmission Date: 20201102
  Serious: Yes (Other)
  Sender: FDA-Public Use
  Company Number: US-GILEAD-2019-0434716

PATIENT
  Age: 38 Year
  Sex: Male

DRUGS (3)
  1. STRIBILD [Suspect]
     Active Substance: COBICISTAT\ELVITEGRAVIR\EMTRICITABINE\TENOFOVIR DISOPROXIL FUMARATE
     Indication: HIV INFECTION
     Dosage: UNK
     Route: 048
     Dates: start: 2013, end: 2018
  2. TRUVADA [Suspect]
     Active Substance: EMTRICITABINE\TENOFOVIR DISOPROXIL FUMARATE
     Indication: HIV INFECTION
     Dosage: UNK
     Route: 048
     Dates: start: 2008, end: 2011
  3. GENVOYA [Concomitant]
     Active Substance: COBICISTAT\ELVITEGRAVIR\EMTRICITABINE\TENOFOVIR ALAFENAMIDE FUMARATE
     Dosage: UNK

REACTIONS (14)
  - Bone density decreased [Unknown]
  - Bone density abnormal [Unknown]
  - Tooth fracture [Not Recovered/Not Resolved]
  - Renal disorder [Recovered/Resolved]
  - Anhedonia [Not Recovered/Not Resolved]
  - Osteonecrosis [Unknown]
  - Tooth loss [Unknown]
  - Economic problem [Not Recovered/Not Resolved]
  - Pain [Not Recovered/Not Resolved]
  - Bone loss [Unknown]
  - Emotional distress [Not Recovered/Not Resolved]
  - Radius fracture [Not Recovered/Not Resolved]
  - Proteinuria [Recovered/Resolved]
  - Anxiety [Not Recovered/Not Resolved]

NARRATIVE: CASE EVENT DATE: 20120224
